FAERS Safety Report 9498563 (Version 1)
Quarter: 2013Q3

REPORT INFORMATION
  Report Type: Spontaneous
  Country: US (occurrence: US)
  Receive Date: 20130904
  Receipt Date: 20130904
  Transmission Date: 20140515
  Serious: No
  Sender: FDA-Public Use
  Company Number: US-PFIZER INC-2013251517

PATIENT
  Age: 57 Year
  Sex: Female
  Weight: 77.1 kg

DRUGS (6)
  1. CELEBREX [Suspect]
     Indication: ARTHRITIS
     Dosage: 200 MG, 2X/DAY
     Route: 048
     Dates: start: 201212
  2. CELEBREX [Suspect]
     Dosage: 200 MG EVERY OTHER DAY
     Route: 048
     Dates: start: 201307
  3. CYMBALTA [Concomitant]
     Indication: FIBROMYALGIA
     Dosage: 60 MG, 2X/DAY
  4. CYMBALTA [Concomitant]
     Dosage: 60 MG, 1X/DAY
     Dates: start: 201307
  5. TRAMADOL [Concomitant]
     Indication: FIBROMYALGIA
     Dosage: UNK
  6. TRIBENZOR [Concomitant]
     Indication: HYPERTENSION
     Dosage: UNK

REACTIONS (3)
  - Incorrect dose administered [Unknown]
  - Joint swelling [Unknown]
  - Local swelling [Unknown]
